FAERS Safety Report 25757353 (Version 1)
Quarter: 2025Q3

REPORT INFORMATION
  Report Type: Spontaneous
  Country: EU (occurrence: EU)
  Receive Date: 20250903
  Receipt Date: 20250903
  Transmission Date: 20251020
  Serious: Yes (Hospitalization)
  Sender: MERCK SHARP & DOHME LLC
  Company Number: None

PATIENT
  Age: 62 Year
  Sex: Male

DRUGS (4)
  1. KEYTRUDA [Suspect]
     Active Substance: PEMBROLIZUMAB
     Indication: Renal cancer
     Dosage: STRENGTH: 25 MG/ML?DOSAGE: 200 MG EVERY 3 WEEKS?DOSE FORM: CONCENTRATE FOR SOLUTION FOR INFUSION.
     Route: 042
     Dates: start: 20250506, end: 20250526
  2. Rutacid 500 MG [Concomitant]
     Route: 048
  3. Primotren 80 MG/400 MG [Concomitant]
  4. Plivit D3 4000 IU [Concomitant]
     Route: 048

REACTIONS (4)
  - Aspartate aminotransferase increased [Unknown]
  - Alanine aminotransferase increased [Unknown]
  - Immune-mediated hepatitis [Unknown]
  - Blood alkaline phosphatase increased [Unknown]

NARRATIVE: CASE EVENT DATE: 20250619
